FAERS Safety Report 22042526 (Version 3)
Quarter: 2023Q1

REPORT INFORMATION
  Report Type: Report from Study
  Country: GR (occurrence: GR)
  Receive Date: 20230228
  Receipt Date: 20230310
  Transmission Date: 20230418
  Serious: Yes (Hospitalization)
  Sender: FDA-Public Use
  Company Number: GR-ABBVIE-4320177

PATIENT
  Age: 85 Year
  Sex: Female

DRUGS (2)
  1. CARBIDOPA\LEVODOPA [Suspect]
     Active Substance: CARBIDOPA\LEVODOPA
     Indication: Parkinson^s disease
     Dosage: MORNING DOSE: 3.1ML(NOT RECEIVED AS PER PHYSICIAN), CONTINUOUS RATE: 2.8ML/H, EXTRA DOSE: 2.2ML
     Route: 050
     Dates: start: 20210401
  2. CARBIDOPA\LEVODOPA [Suspect]
     Active Substance: CARBIDOPA\LEVODOPA
     Dosage: MORNING DOSE: 3.1ML(NOT RECEIVED AS PER PHYSICIAN); CONTINUOUS RATE: 2.7ML/H; EXTRA DOSE: 2.2ML
     Route: 050
     Dates: start: 20230224

REACTIONS (5)
  - Pyrexia [Recovered/Resolved]
  - Pneumonia aspiration [Unknown]
  - Respiratory tract infection [Unknown]
  - Cough [Unknown]
  - Pyrexia [Unknown]
